FAERS Safety Report 5518831-3 (Version None)
Quarter: 2007Q4

REPORT INFORMATION
  Report Type: 
  Country: None (occurrence: None)
  Receive Date: 20071113
  Receipt Date: 20071026
  Transmission Date: 20080405
  Serious: Yes (Hospitalization)
  Sender: FDA-Public Use
  Company Number: 2006BI011069

PATIENT
  Age: 36 Year
  Sex: Female
  Weight: 67 kg

DRUGS (1)
  1. AVONEX [Suspect]
     Indication: RELAPSING-REMITTING MULTIPLE SCLEROSIS
     Dosage: 30 UG;QW;IM
     Route: 030
     Dates: start: 20040501, end: 20060731

REACTIONS (5)
  - CAESAREAN SECTION [None]
  - DYSURIA [None]
  - HAEMORRHAGE [None]
  - PLACENTAL DISORDER [None]
  - PREGNANCY [None]
